FAERS Safety Report 9170906 (Version 4)
Quarter: 2013Q2

REPORT INFORMATION
  Report Type: Spontaneous
  Country: US (occurrence: US)
  Receive Date: 20130319
  Receipt Date: 20130614
  Transmission Date: 20140414
  Serious: Yes (Other)
  Sender: FDA-Public Use
  Company Number: US-PFIZER INC-2013087312

PATIENT
  Age: 78 Year
  Sex: Female

DRUGS (9)
  1. TOVIAZ [Suspect]
     Indication: BLADDER DISORDER
     Dosage: 4 MG, 1X/DAY
  2. TOVIAZ [Suspect]
     Indication: URINARY INCONTINENCE
  3. ZOLOFT [Concomitant]
     Dosage: 50 MG, 1X/DAY
  4. ALTACE [Concomitant]
     Dosage: 2.5 MG, 1X/DAY
  5. LEVOTHYROXINE [Concomitant]
     Dosage: 50 UG, 1X/DAY
  6. ZOCOR [Concomitant]
     Dosage: 40 MG, 1X/DAY
  7. NABUMETONE [Concomitant]
     Dosage: 750 MG, 2X/DAY
  8. ALEVE [Concomitant]
     Dosage: AS NEEDED
  9. BABY ASPIRIN [Concomitant]
     Dosage: 81 MG, 1X/DAY

REACTIONS (6)
  - Diplopia [Unknown]
  - Pyrexia [Unknown]
  - Spinal disorder [Unknown]
  - Drug ineffective [Unknown]
  - Fall [Recovering/Resolving]
  - Skeletal injury [Recovering/Resolving]
